FAERS Safety Report 13362109 (Version 2)
Quarter: 2017Q2

REPORT INFORMATION
  Report Type: Spontaneous
  Country: US (occurrence: US)
  Receive Date: 20170323
  Receipt Date: 20170403
  Transmission Date: 20170830
  Serious: No
  Sender: FDA-Public Use
  Company Number: US-GLAXOSMITHKLINE-US2017039498

PATIENT
  Age: 66 Year
  Sex: Female

DRUGS (1)
  1. ANORO ELLIPTA [Suspect]
     Active Substance: UMECLIDINIUM BROMIDE\VILANTEROL TRIFENATATE
     Indication: DYSPNOEA
     Dosage: 1 PUFF(S), QD
     Route: 055
     Dates: start: 20170307

REACTIONS (12)
  - Peripheral swelling [Not Recovered/Not Resolved]
  - Arthralgia [Unknown]
  - Rash macular [Unknown]
  - Pain in extremity [Not Recovered/Not Resolved]
  - Rash pruritic [Unknown]
  - Condition aggravated [Unknown]
  - Adverse drug reaction [Unknown]
  - Rash [Not Recovered/Not Resolved]
  - Rash erythematous [Unknown]
  - Pruritus generalised [Unknown]
  - Aphthous ulcer [Not Recovered/Not Resolved]
  - Joint swelling [Not Recovered/Not Resolved]

NARRATIVE: CASE EVENT DATE: 201703
